FAERS Safety Report 14671948 (Version 3)
Quarter: 2019Q1

REPORT INFORMATION
  Report Type: Spontaneous
  Country: US (occurrence: US)
  Receive Date: 20180323
  Receipt Date: 20190116
  Transmission Date: 20190417
  Serious: No
  Sender: FDA-Public Use
  Company Number: US-JNJFOC-20180310604

PATIENT
  Age: 13 Year
  Sex: Female
  Weight: 58.97 kg

DRUGS (2)
  1. INVEGA [Suspect]
     Active Substance: PALIPERIDONE
     Indication: HALLUCINATIONS, MIXED
     Dosage: 1 TABLET AT QPM
     Route: 048
     Dates: start: 20180131, end: 20180221
  2. INVEGA [Suspect]
     Active Substance: PALIPERIDONE
     Indication: HALLUCINATIONS, MIXED
     Route: 048
     Dates: start: 20180222, end: 20180307

REACTIONS (2)
  - Galactorrhoea [Not Recovered/Not Resolved]
  - Drug ineffective [Unknown]

NARRATIVE: CASE EVENT DATE: 201802
